FAERS Safety Report 25218522 (Version 1)
Quarter: 2025Q2

REPORT INFORMATION
  Report Type: Spontaneous
  Country: FR (occurrence: FR)
  Receive Date: 20250421
  Receipt Date: 20250421
  Transmission Date: 20250717
  Serious: Yes (Life-Threatening)
  Sender: AMGEN
  Company Number: None

PATIENT
  Age: 64 Year
  Sex: Male
  Weight: 125 kg

DRUGS (20)
  1. VECTIBIX [Suspect]
     Active Substance: PANITUMUMAB
     Indication: Adenocarcinoma of colon
     Route: 040
     Dates: start: 20250305, end: 20250305
  2. VECTIBIX [Suspect]
     Active Substance: PANITUMUMAB
     Route: 040
     Dates: start: 20250326, end: 20250326
  3. OXALIPLATIN [Suspect]
     Active Substance: OXALIPLATIN
     Indication: Adenocarcinoma of colon
     Route: 040
     Dates: start: 20250305, end: 20250305
  4. OXALIPLATIN [Suspect]
     Active Substance: OXALIPLATIN
     Route: 040
     Dates: start: 20250326, end: 20250326
  5. FLUOROURACIL [Suspect]
     Active Substance: FLUOROURACIL
     Indication: Adenocarcinoma of colon
     Route: 040
     Dates: start: 20250305, end: 20250305
  6. FLUOROURACIL [Suspect]
     Active Substance: FLUOROURACIL
     Route: 040
     Dates: start: 20250326, end: 20250326
  7. METHYLPREDNISOLONE [Concomitant]
     Active Substance: METHYLPREDNISOLONE
     Indication: Chemotherapy side effect prophylaxis
     Route: 040
     Dates: start: 20250305, end: 20250305
  8. METHYLPREDNISOLONE [Concomitant]
     Active Substance: METHYLPREDNISOLONE
     Route: 040
     Dates: start: 20250326, end: 20250326
  9. ONDANSETRON [Concomitant]
     Active Substance: ONDANSETRON
     Indication: Chemotherapy side effect prophylaxis
     Route: 040
     Dates: start: 20250305, end: 20250305
  10. ONDANSETRON [Concomitant]
     Active Substance: ONDANSETRON
     Route: 040
     Dates: start: 20250326, end: 20250326
  11. LEVOLEUCOVORIN CALCIUM [Concomitant]
     Active Substance: LEVOLEUCOVORIN CALCIUM
     Indication: Vitamin supplementation
     Route: 040
     Dates: start: 20250305, end: 20250305
  12. LEVOLEUCOVORIN CALCIUM [Concomitant]
     Active Substance: LEVOLEUCOVORIN CALCIUM
     Route: 040
     Dates: start: 20250326, end: 20250326
  13. RAMIPRIL [Concomitant]
     Active Substance: RAMIPRIL
     Indication: Hypertension
     Dosage: 5 MILLIGRAM, QD
     Route: 048
  14. ASPIRIN [Concomitant]
     Active Substance: ASPIRIN
     Indication: Product used for unknown indication
     Dosage: 100 MILLIGRAM, QD
     Route: 048
  15. ELIQUIS [Concomitant]
     Active Substance: APIXABAN
     Indication: Atrial flutter
     Dosage: 5MG 1-0-1
     Route: 048
     Dates: start: 20250319
  16. BISOPROLOL [Concomitant]
     Active Substance: BISOPROLOL
     Indication: Atrial flutter
     Dosage: 2.5 MILLIGRAM, QD
     Route: 048
     Dates: start: 20250319
  17. OZEMPIC [Concomitant]
     Active Substance: SEMAGLUTIDE
     Indication: Insulin-requiring type 2 diabetes mellitus
     Dosage: 1 DOSAGE FORM, QD
     Route: 058
  18. TRESIBA [Concomitant]
     Active Substance: INSULIN DEGLUDEC
     Indication: Insulin-requiring type 2 diabetes mellitus
     Dosage: 80 INTERNATIONAL UNIT, QD
     Route: 058
  19. XIGDUO XR [Concomitant]
     Active Substance: DAPAGLIFLOZIN PROPANEDIOL\METFORMIN HYDROCHLORIDE
     Indication: Insulin-requiring type 2 diabetes mellitus
     Dosage: 2 DOSAGE FORM, QD
     Route: 048
  20. REPAGLINIDE [Concomitant]
     Active Substance: REPAGLINIDE
     Indication: Insulin-requiring type 2 diabetes mellitus
     Dosage: 3 MILLIGRAM, QD
     Route: 048

REACTIONS (1)
  - Anaphylactic shock [Recovered/Resolved]

NARRATIVE: CASE EVENT DATE: 20250326
